FAERS Safety Report 7533125-2 (Version None)
Quarter: 2011Q2

REPORT INFORMATION
  Report Type: 
  Country: None (occurrence: None)
  Receive Date: 20110608
  Receipt Date: 20020415
  Transmission Date: 20111010
  Serious: Yes (Death)
  Sender: FDA-Public Use
  Company Number: PHBS2002CA01598

PATIENT
  Sex: Female

DRUGS (8)
  1. GLUCOPHAG [Concomitant]
     Dosage: 500 MG, TID
     Route: 065
  2. LANOXIN [Concomitant]
     Dosage: .125 MG, QD
     Route: 065
  3. RISPERDAL [Concomitant]
     Dosage: 1 MG, QHS
     Route: 065
  4. COUMADIN [Concomitant]
     Dosage: 2.5 MG, QD
     Route: 065
  5. EXELON [Suspect]
     Indication: DEMENTIA ALZHEIMER'S TYPE
     Route: 048
     Dates: start: 20001115
  6. PAXIL [Concomitant]
     Dosage: 20 MG, QD
     Route: 065
  7. DIABETA [Concomitant]
     Dosage: 5 MG, BID
     Route: 065
  8. EXELON [Suspect]
     Dosage: 3 MG, BID
     Route: 048
     Dates: start: 20001207

REACTIONS (1)
  - DEATH [None]
